FAERS Safety Report 10097223 (Version 3)
Quarter: 2014Q3

REPORT INFORMATION
  Report Type: Report from Study
  Country: US (occurrence: US)
  Receive Date: 20140422
  Receipt Date: 20140702
  Transmission Date: 20150326
  Serious: Yes (Hospitalization, Other)
  Sender: FDA-Public Use
  Company Number: PHEH2014US007759

PATIENT
  Age: 29 Year
  Sex: Male
  Weight: 58.5 kg

DRUGS (24)
  1. COMBIVENT [Concomitant]
     Active Substance: ALBUTEROL SULFATE\IPRATROPIUM BROMIDE
     Indication: WHEEZING
     Dosage: 2 DF, EVERY 6 HOURS
     Route: 055
  2. SINGULAIR [Concomitant]
     Active Substance: MONTELUKAST SODIUM
     Dosage: 1 DF, QD
     Route: 048
  3. PRILOSEC [Concomitant]
     Active Substance: OMEPRAZOLE MAGNESIUM
     Dosage: 20 MG, UNK
     Route: 048
  4. PNEUMOCOCCAL POLYSACCHARIDE VACCINE [Concomitant]
     Active Substance: PNEUMOCOCCAL VACCINE POLYVALENT
     Dosage: UNK UKN, UNK
     Dates: start: 20140322
  5. ZYRTEC ALLERGY [Concomitant]
     Dosage: 10 MG, DAILY
     Route: 048
  6. PULMOZYME [Concomitant]
     Active Substance: DORNASE ALFA
     Dosage: 2.5 MG, BID
     Route: 055
  7. ZENPEP [Concomitant]
     Active Substance: PANCRELIPASE\PANCRELIPASE AMYLASE\PANCRELIPASE LIPASE\PANCRELIPASE PROTEASE
     Dosage: 3 DF, WITH SNACKS
     Route: 048
  8. ZENPEP [Concomitant]
     Active Substance: PANCRELIPASE\PANCRELIPASE AMYLASE\PANCRELIPASE LIPASE\PANCRELIPASE PROTEASE
     Dosage: 3 DF, WITH SNACKS
     Route: 048
  9. ZITHROMAX [Concomitant]
     Active Substance: AZITHROMYCIN DIHYDRATE
     Dosage: 500 MG, THREE TIMES WEEKLY (10 MG DAILY)
     Route: 048
  10. ZENPEP [Concomitant]
     Active Substance: PANCRELIPASE\PANCRELIPASE AMYLASE\PANCRELIPASE LIPASE\PANCRELIPASE PROTEASE
     Dosage: 5 DF, WITH MEALS
     Route: 048
  11. CHOLECALCIFEROL [Concomitant]
     Active Substance: CHOLECALCIFEROL
     Dosage: 1 DF, QD
     Route: 048
  12. TETANUS VACCINE [Concomitant]
     Active Substance: CLOSTRIDIUM TETANI TOXOID ANTIGEN (FORMALDEHYDE INACTIVATED)
     Dosage: UNK UKN, UNK
     Dates: start: 19890426
  13. NOVOLOG [Concomitant]
     Active Substance: INSULIN ASPART
     Dosage: 100 UNIT PER ML
     Route: 058
  14. HUMALOG [Concomitant]
     Active Substance: INSULIN LISPRO
     Dosage: 100 UNIT PER ML
  15. INFLUENZA [Concomitant]
     Active Substance: INFLUENZA VIRUS VACCINE
     Dosage: UNK UKN, UNK
     Dates: start: 20140322
  16. TOBI [Suspect]
     Active Substance: TOBRAMYCIN
     Indication: CYSTIC FIBROSIS
     Dosage: 300 MG/5ML, BID
     Route: 055
  17. ERGOCALCIFEROL. [Concomitant]
     Active Substance: ERGOCALCIFEROL
     Dosage: 1 DF, EVERY 7 DAYS
     Route: 048
  18. INFLUENZA VACCINE [Concomitant]
     Active Substance: INFLUENZA VIRUS VACCINE
     Dosage: UNK UKN, UNK
     Dates: start: 20140322
  19. LANTUS [Concomitant]
     Active Substance: INSULIN GLARGINE
     Dosage: 100 UNIT PER ML
  20. TOBI [Suspect]
     Active Substance: TOBRAMYCIN
     Indication: PSEUDOMONAS INFECTION
     Dosage: 300 MG, BID 28 DAYS OFF
     Route: 055
  21. AQUADEKS [Concomitant]
     Dosage: 1 DF, DAILY
     Route: 048
  22. HUMULIN N [Concomitant]
     Active Substance: INSULIN HUMAN
     Dosage: 20 UNIT, BEFORE BREAK FAST
     Route: 058
  23. NASONEX [Concomitant]
     Active Substance: MOMETASONE FUROATE
     Dosage: 1 DF, QD
     Route: 045
  24. ALBUTEROL. [Concomitant]
     Active Substance: ALBUTEROL
     Dosage: UNK UKN, UNK

REACTIONS (59)
  - Fatigue [Unknown]
  - Sputum abnormal [Unknown]
  - Bronchial secretion retention [Unknown]
  - Sputum culture positive [Unknown]
  - Forced expiratory volume decreased [Unknown]
  - Staphylococcus test positive [Unknown]
  - Bacterial infection [Unknown]
  - Rhinitis allergic [Unknown]
  - Crepitations [Unknown]
  - Rhonchi [Unknown]
  - Stress [Unknown]
  - Blood potassium decreased [Unknown]
  - Weight decreased [Unknown]
  - Proteus test positive [Unknown]
  - Pneumonia [Unknown]
  - Lung hyperinflation [Unknown]
  - Endocrine disorder [Unknown]
  - Blood 25-hydroxycholecalciferol decreased [Unknown]
  - Carbon dioxide increased [Unknown]
  - Protein total decreased [Unknown]
  - Hypovitaminosis [Unknown]
  - Vitamin A deficiency [Unknown]
  - Vitamin K deficiency [Unknown]
  - Stenotrophomonas infection [Unknown]
  - Haemoptysis [Unknown]
  - Anaemia [Unknown]
  - Forced vital capacity decreased [Unknown]
  - Cough [Unknown]
  - Blood glucose increased [Recovered/Resolved]
  - Haemorrhoids [Unknown]
  - Condition aggravated [Unknown]
  - Lung disorder [Unknown]
  - Pseudomonas infection [Unknown]
  - Gastrooesophageal reflux disease [Unknown]
  - Obstructive airways disorder [Unknown]
  - Alanine aminotransferase increased [Unknown]
  - Blood osmolarity decreased [Unknown]
  - Blood sodium decreased [Unknown]
  - Malaise [Unknown]
  - Diabetes mellitus [Unknown]
  - Malnutrition [Unknown]
  - Cystic fibrosis [Unknown]
  - Blood albumin decreased [Unknown]
  - Blood alkaline phosphatase increased [Unknown]
  - Vitamin D deficiency [Unknown]
  - Seasonal allergy [Unknown]
  - Bronchiolitis [Unknown]
  - Respiratory tract infection bacterial [Unknown]
  - Wheezing [Unknown]
  - Blood creatinine decreased [Unknown]
  - Pyrexia [Unknown]
  - Vitamin E deficiency [Unknown]
  - Vitamin A decreased [Unknown]
  - Gastrointestinal disorder [Unknown]
  - Hepatic steatosis [Unknown]
  - Aspartate aminotransferase increased [Unknown]
  - Blood calcium decreased [Unknown]
  - Blood chloride decreased [Unknown]
  - High density lipoprotein decreased [Unknown]

NARRATIVE: CASE EVENT DATE: 20130314
